FAERS Safety Report 8501043 (Version 5)
Quarter: 2018Q4

REPORT INFORMATION
  Report Type: Report from Study
  Country: JP (occurrence: JP)
  Receive Date: 20120410
  Receipt Date: 20181001
  Transmission Date: 20190205
  Serious: Yes (Other)
  Sender: FDA-Public Use
  Company Number: PHHY2010JP77704

PATIENT
  Age: 46 Year
  Sex: Female

DRUGS (18)
  1. ULCERLMIN [Suspect]
     Active Substance: SUCRALFATE
     Indication: PROPHYLAXIS
     Dosage: 3 G, UNK
     Route: 048
     Dates: start: 20100108
  2. PREDONINE [Suspect]
     Active Substance: PREDNISOLONE
     Indication: PROPHYLAXIS
     Dosage: 10 MG, UNK
     Route: 048
     Dates: start: 20100109, end: 20100722
  3. TAKEPRON [Concomitant]
     Active Substance: LANSOPRAZOLE
     Indication: PROPHYLAXIS
     Dosage: 15 MG, UNK
     Route: 048
     Dates: start: 20090605
  4. NEUROTROPIN [Concomitant]
     Active Substance: NEUROTROPIN
     Indication: PRODUCT USED FOR UNKNOWN INDICATION
     Dosage: 16 IU, UNK
     Route: 048
     Dates: start: 20091107
  5. MYSLEE [Concomitant]
     Active Substance: ZOLPIDEM TARTRATE
     Indication: PRODUCT USED FOR UNKNOWN INDICATION
     Dosage: 5 MG, UNK
     Route: 048
     Dates: start: 20080906, end: 20120402
  6. MAGLAX [Concomitant]
     Active Substance: MAGNESIUM OXIDE
     Indication: PROPHYLAXIS
     Dosage: 1980 MG, UNK
     Route: 048
     Dates: start: 20100108
  7. TASIGNA [Suspect]
     Active Substance: NILOTINIB
     Indication: CHRONIC MYELOID LEUKAEMIA
     Dosage: 400 MG, BID
     Route: 048
     Dates: start: 20091107, end: 20091116
  8. TASIGNA [Suspect]
     Active Substance: NILOTINIB
     Dosage: 400 MG, BID
     Route: 048
     Dates: start: 20091205, end: 20091211
  9. SILECE [Concomitant]
     Active Substance: FLUNITRAZEPAM
     Indication: PRODUCT USED FOR UNKNOWN INDICATION
     Dosage: 1 MG, UNK
     Route: 048
     Dates: start: 20100402
  10. GASTER [Concomitant]
     Active Substance: FAMOTIDINE
     Indication: PRODUCT USED FOR UNKNOWN INDICATION
     Dosage: 20 MG, UNK
     Route: 048
     Dates: start: 20100529, end: 20100610
  11. LYRICA [Concomitant]
     Active Substance: PREGABALIN
     Indication: PRODUCT USED FOR UNKNOWN INDICATION
     Dosage: 225 MG, UNK
     Route: 048
     Dates: start: 20120224
  12. TASIGNA [Suspect]
     Active Substance: NILOTINIB
     Dosage: 200 MG, BID
     Route: 048
     Dates: start: 20100109
  13. TAKEPRON [Concomitant]
     Active Substance: LANSOPRAZOLE
     Dosage: 30 MG, UNK
     Route: 048
  14. MUCOSTA [Concomitant]
     Active Substance: REBAMIPIDE
     Indication: PROPHYLAXIS
     Dosage: 300 MG, UNK
     Route: 048
     Dates: start: 20090605, end: 201006
  15. NEUROTROPIN [Concomitant]
     Active Substance: NEUROTROPIN
     Dosage: 4 DF, UNK
     Route: 048
     Dates: end: 20120223
  16. LOXONIN [Concomitant]
     Active Substance: LOXOPROFEN SODIUM
     Indication: PRODUCT USED FOR UNKNOWN INDICATION
     Dosage: UNK
     Route: 065
     Dates: start: 20100909
  17. FERRUM//FERROUS FUMARATE [Concomitant]
     Indication: PRODUCT USED FOR UNKNOWN INDICATION
     Dosage: 1 DF, UNK
     Route: 048
  18. FEROTYM [Concomitant]
     Active Substance: FERROUS CITRATE\SODIUM
     Indication: PRODUCT USED FOR UNKNOWN INDICATION
     Dosage: 2 DF, UNK
     Route: 048
     Dates: end: 20120120

REACTIONS (18)
  - Glucose tolerance impaired [Recovered/Resolved]
  - White blood cell count increased [Recovered/Resolved]
  - Arthralgia [Not Recovered/Not Resolved]
  - Concomitant disease aggravated [Recovered/Resolved]
  - Upper respiratory tract inflammation [Recovered/Resolved]
  - Platelet count increased [Not Recovered/Not Resolved]
  - Hepatic enzyme increased [Recovered/Resolved]
  - Rash [Recovered/Resolved]
  - Lymphocyte count decreased [Recovered/Resolved]
  - Anaemia [Recovering/Resolving]
  - Myalgia [Not Recovered/Not Resolved]
  - Concomitant disease aggravated [Not Recovered/Not Resolved]
  - Glucose tolerance impaired [Recovered/Resolved]
  - White blood cell count increased [Recovered/Resolved]
  - Lymphocyte count decreased [Recovered/Resolved]
  - Iron deficiency anaemia [Not Recovered/Not Resolved]
  - Neutrophil count increased [Recovered/Resolved]
  - Sinusitis [Recovered/Resolved]

NARRATIVE: CASE EVENT DATE: 20091210
